FAERS Safety Report 5057745-2 (Version None)
Quarter: 2006Q3

REPORT INFORMATION
  Report Type: 
  Country: None (occurrence: None)
  Receive Date: 20060721
  Receipt Date: 20060202
  Transmission Date: 20061208
  Serious: No
  Sender: FDA-Public Use
  Company Number: US-GLAXOSMITHKLINE-A0592126A

PATIENT
  Age: 80 Year
  Sex: Male

DRUGS (10)
  1. AVANDIA [Suspect]
     Indication: DIABETES MELLITUS NON-INSULIN-DEPENDENT
     Dosage: 2MG TWICE PER DAY
     Route: 048
  2. CORTISONE INJECTION [Suspect]
     Route: 042
  3. GLIPIZIDE [Concomitant]
  4. COUMADIN [Concomitant]
  5. ZOCOR [Concomitant]
  6. DILTIAZEM HCL [Concomitant]
  7. DIGOXIN [Concomitant]
  8. FISH OIL [Concomitant]
  9. VITAMIN B COMPLEX CAP [Concomitant]
  10. ASCORBIC ACID [Concomitant]

REACTIONS (2)
  - BLOOD GLUCOSE INCREASED [None]
  - GLYCOSYLATED HAEMOGLOBIN INCREASED [None]
